FAERS Safety Report 5610848-3 (Version None)
Quarter: 2008Q1

REPORT INFORMATION
  Report Type: 
  Country: None (occurrence: None)
  Receive Date: 20080201
  Receipt Date: 20080128
  Transmission Date: 20080703
  Serious: Yes (Other)
  Sender: FDA-Public Use
  Company Number: US-JNJFOC-20080107216

PATIENT
  Sex: Male
  Weight: 80.29 kg

DRUGS (3)
  1. REMICADE [Suspect]
  2. REMICADE [Suspect]
     Indication: COLITIS ULCERATIVE
  3. PREDNISONE TAB [Concomitant]
     Dosage: LESS THAN 3 MONTHS.

REACTIONS (1)
  - MYCOBACTERIUM MARINUM INFECTION [None]
